FAERS Safety Report 5485271-5 (Version None)
Quarter: 2007Q4

REPORT INFORMATION
  Report Type: 
  Country: None (occurrence: None)
  Receive Date: 20071010
  Receipt Date: 20071010
  Transmission Date: 20080405
  Serious: Yes (Hospitalization)
  Sender: FDA-Public Use
  Company Number: None

PATIENT
  Age: 63 Year
  Sex: Male

DRUGS (6)
  1. PREDNISONE [Suspect]
     Indication: MANTLE CELL LYMPHOMA
  2. DOXORUBICIN HCL [Suspect]
     Indication: MANTLE CELL LYMPHOMA
  3. VINCRISTINE [Suspect]
     Indication: MANTLE CELL LYMPHOMA
  4. RITUXIMAB [Suspect]
     Indication: MANTLE CELL LYMPHOMA
  5. CYCLOPHOSPHAMIDE [Suspect]
     Indication: MANTLE CELL LYMPHOMA
  6. VELCADE [Suspect]
     Indication: MANTLE CELL LYMPHOMA

REACTIONS (2)
  - DEPRESSED LEVEL OF CONSCIOUSNESS [None]
  - HYPOGLYCAEMIA [None]
